FAERS Safety Report 24285974 (Version 2)
Quarter: 2024Q3

REPORT INFORMATION
  Report Type: Report from Study
  Country: PY (occurrence: PY)
  Receive Date: 20240905
  Receipt Date: 20240925
  Transmission Date: 20241016
  Serious: Yes (Hospitalization)
  Sender: ROCHE
  Company Number: PY-ROCHE-10000074051

PATIENT
  Age: 12 Year
  Sex: Male
  Weight: 41 kg

DRUGS (1)
  1. EVRYSDI [Suspect]
     Active Substance: RISDIPLAM
     Indication: Spinal muscular atrophy
     Dosage: EVRYSDI (RISDIPLAM) 60MG/80 ML?PHARMACEUTICAL FORM / PRESENTATION: RECONSTITUTED POWDER
     Route: 048
     Dates: start: 20220822

REACTIONS (4)
  - Vomiting [Recovered/Resolved]
  - Pyrexia [Recovered/Resolved]
  - Upper respiratory tract infection [Recovered/Resolved]
  - Respiratory tract inflammation [Recovered/Resolved]

NARRATIVE: CASE EVENT DATE: 20240901
